FAERS Safety Report 6469579-2 (Version None)
Quarter: 2009Q4

REPORT INFORMATION
  Report Type: 
  Country: None (occurrence: None)
  Receive Date: 20091203
  Receipt Date: 20091125
  Transmission Date: 20100525
  Serious: Yes (Other)
  Sender: FDA-Public Use
  Company Number: BR-TEVA-216376USA

PATIENT
  Age: 3 Year
  Sex: Male
  Weight: 20 kg

DRUGS (1)
  1. PIMOZIDE TABLETS [Suspect]
     Indication: ACCIDENTAL EXPOSURE
     Dosage: 6 TABLETS- ACCIDENTALLY
     Route: 048
     Dates: start: 20091109, end: 20091109

REACTIONS (6)
  - ACCIDENTAL EXPOSURE [None]
  - DYSPHONIA [None]
  - HEART RATE INCREASED [None]
  - MOVEMENT DISORDER [None]
  - SALIVARY HYPERSECRETION [None]
  - SOMNOLENCE [None]
